FAERS Safety Report 21628093 (Version 1)
Quarter: 2022Q4

REPORT INFORMATION
  Report Type: Spontaneous
  Country: US (occurrence: US)
  Receive Date: 20221122
  Receipt Date: 20221122
  Transmission Date: 20230113
  Serious: No
  Sender: FDA-Public Use
  Company Number: US-PFIZER INC-202201314076

PATIENT
  Age: 74 Year
  Sex: Female

DRUGS (1)
  1. IBRANCE [Suspect]
     Active Substance: PALBOCICLIB
     Dosage: TAKE 1 TABLET FOR 21 DAYS ON AND 7 DAYS OFF
     Dates: start: 20221105

REACTIONS (11)
  - Feeling abnormal [Unknown]
  - Urinary tract pain [Unknown]
  - Urinary tract infection [Unknown]
  - Sinusitis [Unknown]
  - Fatigue [Unknown]
  - Periorbital pain [Unknown]
  - Headache [Unknown]
  - Rhinorrhoea [Unknown]
  - Micturition urgency [Unknown]
  - Vomiting [Unknown]
  - Diarrhoea [Unknown]

NARRATIVE: CASE EVENT DATE: 20221101
